FAERS Safety Report 13815769 (Version 1)
Quarter: 2017Q3

REPORT INFORMATION
  Report Type: Report from Study
  Country: None (occurrence: NL)
  Receive Date: 20170731
  Receipt Date: 20170731
  Transmission Date: 20171127
  Serious: Yes (Other)
  Sender: FDA-Public Use
  Company Number: NL-ABBVIE-17P-114-1977538-00

PATIENT
  Sex: Male
  Weight: 62 kg

DRUGS (3)
  1. LUCRIN DEPOT [Suspect]
     Active Substance: LEUPROLIDE ACETATE
     Dosage: ADMINISTRATION OF 09-MAY-2017
     Route: 050
  2. LUCRIN DEPOT [Suspect]
     Active Substance: LEUPROLIDE ACETATE
     Dosage: ADMINISTRATION OF 24-JUL-2017
     Route: 050
  3. LUCRIN DEPOT [Suspect]
     Active Substance: LEUPROLIDE ACETATE
     Indication: PROSTATE CANCER
     Dosage: BATCH NUMBER 1065014 ADMINISTRATION OF  16-FEB-2017
     Route: 050
     Dates: start: 20120710

REACTIONS (2)
  - Paraesthesia [Not Recovered/Not Resolved]
  - Angioplasty [Unknown]

NARRATIVE: CASE EVENT DATE: 2017
